FAERS Safety Report 4561827-9 (Version None)
Quarter: 2005Q1

REPORT INFORMATION
  Report Type: 
  Country: None (occurrence: None)
  Receive Date: 20050125
  Receipt Date: 20050112
  Transmission Date: 20050727
  Serious: Yes (Hospitalization)
  Sender: FDA-Public Use
  Company Number: 200510196BCC

PATIENT
  Age: 53 Year
  Sex: Male
  Weight: 77.1115 kg

DRUGS (7)
  1. ALEVE (CAPLET) [Suspect]
     Indication: PAIN
     Dosage: IRR, ORAL
     Route: 048
  2. ABATOLA [Concomitant]
  3. INTERFERON [Concomitant]
  4. REBETOL [Concomitant]
  5. KEPPRA [Concomitant]
  6. PROPRANOLOL [Concomitant]
  7. PEGINTERFERON [Concomitant]

REACTIONS (5)
  - CEREBROVASCULAR ACCIDENT [None]
  - CONVULSION [None]
  - FACIAL PALSY [None]
  - VARICES OESOPHAGEAL [None]
  - VASCULAR RUPTURE [None]
